FAERS Safety Report 20942920 (Version 1)
Quarter: 2022Q2

REPORT INFORMATION
  Report Type: Spontaneous
  Country: BR (occurrence: BR)
  Receive Date: 20220610
  Receipt Date: 20220610
  Transmission Date: 20220720
  Serious: Yes (Hospitalization, Other)
  Sender: FDA-Public Use
  Company Number: BR-BRISTOL-MYERS SQUIBB COMPANY-2022-051575

PATIENT
  Age: 72 Year
  Sex: Male

DRUGS (1)
  1. OPDIVO [Suspect]
     Active Substance: NIVOLUMAB
     Indication: Gastrointestinal disorder therapy
     Dosage: DOSE : 480 MG;     FREQ : UNAVAILABLE
     Route: 065
     Dates: start: 202112

REACTIONS (4)
  - Vomiting [Unknown]
  - Confusional state [Unknown]
  - Delusion [Unknown]
  - Encephalitis [Unknown]
